FAERS Safety Report 23593770 (Version 4)
Quarter: 2024Q4

REPORT INFORMATION
  Report Type: Spontaneous
  Country: US (occurrence: US)
  Receive Date: 20240304
  Receipt Date: 20241129
  Transmission Date: 20250115
  Serious: Yes (Other)
  Sender: SANOFI AVENTIS
  Company Number: US-SA-SAC20240301000162

PATIENT
  Age: 12 Year
  Sex: Male

DRUGS (1)
  1. DUPIXENT [Suspect]
     Active Substance: DUPILUMAB
     Indication: Asthma
     Dosage: 300 MG, QOW
     Route: 058

REACTIONS (8)
  - Pneumonia [Recovering/Resolving]
  - Tremor [Unknown]
  - Hyperhidrosis [Unknown]
  - Presyncope [Unknown]
  - Paraesthesia [Unknown]
  - Hypoaesthesia [Unknown]
  - Fatigue [Unknown]
  - Asthma [Unknown]

NARRATIVE: CASE EVENT DATE: 20240801
